FAERS Safety Report 10924918 (Version 2)
Quarter: 2015Q2

REPORT INFORMATION
  Report Type: Spontaneous
  Country: US (occurrence: US)
  Receive Date: 20150318
  Receipt Date: 20150524
  Transmission Date: 20150821
  Serious: No
  Sender: FDA-Public Use
  Company Number: US-JNJFOC-20120902636

PATIENT
  Age: 65 Year
  Sex: Male
  Weight: 70.31 kg

DRUGS (3)
  1. NIZORAL A-D [Suspect]
     Active Substance: KETOCONAZOLE
     Indication: ALOPECIA
     Dosage: 2-3 TIMES A WEEK FOR 3 WEEKS
     Route: 061
     Dates: start: 20120701, end: 20120822
  2. NIZORAL A-D [Suspect]
     Active Substance: KETOCONAZOLE
     Indication: DIHYDROTESTOSTERONE LEVEL
     Dosage: 2-3 TIMES A WEEK FOR 3 WEEKS
     Route: 061
     Dates: start: 20120701, end: 20120822
  3. TESTOSTERONE. [Concomitant]
     Active Substance: TESTOSTERONE
     Indication: BLOOD TESTOSTERONE DECREASED
     Dosage: 2 MONTHS
     Route: 065

REACTIONS (4)
  - Discomfort [Not Recovered/Not Resolved]
  - Inappropriate schedule of drug administration [Recovered/Resolved]
  - Rash pruritic [Recovering/Resolving]
  - Product use issue [Recovered/Resolved]

NARRATIVE: CASE EVENT DATE: 20120701
